FAERS Safety Report 4352108-7 (Version None)
Quarter: 2004Q2

REPORT INFORMATION
  Report Type: 
  Country: None (occurrence: None)
  Receive Date: 20040428
  Receipt Date: 20040420
  Transmission Date: 20050107
  Serious: Yes (Other)
  Sender: FDA-Public Use
  Company Number: 200411931BCC

PATIENT
  Age: 95 Year
  Sex: Female
  Weight: 24.4942 kg

DRUGS (4)
  1. E.S. BAYER BACK + BODY PAIN (ACETYLSALICYLIC ACID) [Suspect]
     Indication: PAIN
     Dosage: 500/ 32.5 MG, ORAL
     Route: 048
  2. FUROSEMIDE [Concomitant]
  3. ENALAPRIL MALEATE [Concomitant]
  4. DIGOXIN [Concomitant]

REACTIONS (1)
  - HALLUCINATION [None]
